FAERS Safety Report 10156623 (Version 1)
Quarter: 2014Q2

REPORT INFORMATION
  Report Type: Spontaneous
  Country: IN (occurrence: IN)
  Receive Date: 20140507
  Receipt Date: 20140507
  Transmission Date: 20141212
  Serious: Yes (Other)
  Sender: FDA-Public Use
  Company Number: IN-BAYER-2014-063248

PATIENT
  Sex: Male

DRUGS (1)
  1. BETAFERON [Suspect]
     Dosage: UNK

REACTIONS (2)
  - Mobility decreased [None]
  - Abasia [None]
